FAERS Safety Report 13820584 (Version 1)
Quarter: 2017Q3

REPORT INFORMATION
  Report Type: Spontaneous
  Country: FR (occurrence: FR)
  Receive Date: 20170801
  Receipt Date: 20170801
  Transmission Date: 20171127
  Serious: Yes (Hospitalization)
  Sender: FDA-Public Use
  Company Number: FR-ASTRAZENECA-2017SE76826

PATIENT
  Age: 19650 Day
  Sex: Female

DRUGS (10)
  1. OPTIJECT [Suspect]
     Active Substance: IOVERSOL
     Route: 065
     Dates: start: 201706
  2. CRESTOR [Suspect]
     Active Substance: ROSUVASTATIN CALCIUM
     Indication: HYPERCHOLESTEROLAEMIA
     Route: 048
  3. MICROPAQUE [Suspect]
     Active Substance: BARIUM SULFATE
     Route: 065
     Dates: start: 201706
  4. XANAX [Suspect]
     Active Substance: ALPRAZOLAM
     Route: 065
     Dates: start: 201706
  5. ASPIRINE [Suspect]
     Active Substance: ASPIRIN
     Route: 048
  6. TRANSIPEG [Suspect]
     Active Substance: POLYETHYLENE GLYCOL 3350
     Route: 065
  7. INEXIUM [Suspect]
     Active Substance: ESOMEPRAZOLE
     Route: 048
     Dates: start: 201706, end: 20170713
  8. EFFEXOR [Suspect]
     Active Substance: VENLAFAXINE HYDROCHLORIDE
     Indication: DEPRESSION
     Route: 048
     Dates: end: 20170713
  9. NUROFEN [Suspect]
     Active Substance: IBUPROFEN
     Indication: HEADACHE
     Route: 065
     Dates: start: 201706, end: 20170713
  10. OESTRODOSE [Suspect]
     Active Substance: ESTRADIOL
     Route: 065

REACTIONS (4)
  - Neutropenia [Recovering/Resolving]
  - Aphthous ulcer [Unknown]
  - Pyrexia [Recovering/Resolving]
  - Agranulocytosis [Recovered/Resolved]

NARRATIVE: CASE EVENT DATE: 20170710
